FAERS Safety Report 9430169 (Version 1)
Quarter: 2013Q3

REPORT INFORMATION
  Report Type: Report from Study
  Country: US (occurrence: US)
  Receive Date: 20130730
  Receipt Date: 20130730
  Transmission Date: 20140515
  Serious: No
  Sender: FDA-Public Use
  Company Number: US-ABBOTT-13P-163-1077556-00

PATIENT
  Sex: Female
  Weight: 74.91 kg

DRUGS (12)
  1. NIASPAN (COATED) [Suspect]
     Indication: HIGH DENSITY LIPOPROTEIN DECREASED
     Dates: start: 201302
  2. ASA [Concomitant]
     Indication: PRODUCT USED FOR UNKNOWN INDICATION
  3. LIPITOR [Concomitant]
     Indication: PRODUCT USED FOR UNKNOWN INDICATION
  4. ZETIA [Concomitant]
     Indication: PRODUCT USED FOR UNKNOWN INDICATION
  5. RETALIN [Concomitant]
     Indication: PRODUCT USED FOR UNKNOWN INDICATION
  6. XARELTO [Concomitant]
     Indication: PRODUCT USED FOR UNKNOWN INDICATION
  7. VITAMIN E [Concomitant]
     Indication: PRODUCT USED FOR UNKNOWN INDICATION
  8. BIOTIN [Concomitant]
     Indication: PRODUCT USED FOR UNKNOWN INDICATION
  9. VITAMIN D [Concomitant]
     Indication: PRODUCT USED FOR UNKNOWN INDICATION
  10. FISH OIL [Concomitant]
     Indication: PRODUCT USED FOR UNKNOWN INDICATION
  11. FLAX SEED OIL [Concomitant]
     Indication: PRODUCT USED FOR UNKNOWN INDICATION
  12. IGG [Concomitant]
     Indication: PRODUCT USED FOR UNKNOWN INDICATION
     Dosage: INFUSION EVERY MONTH

REACTIONS (2)
  - Flushing [Recovered/Resolved]
  - Skin burning sensation [Recovered/Resolved]
